FAERS Safety Report 6167203-X (Version None)
Quarter: 2009Q2

REPORT INFORMATION
  Report Type: 
  Country: None (occurrence: None)
  Receive Date: 20090424
  Receipt Date: 20090415
  Transmission Date: 20091009
  Serious: Yes (Life-Threatening, Hospitalization, Other)
  Sender: FDA-Public Use
  Company Number: US-ELI_LILLY_AND_COMPANY-US200902007167

PATIENT
  Sex: Female
  Weight: 58.05 kg

DRUGS (7)
  1. FORTEO [Suspect]
     Indication: OSTEOPOROSIS
     Dosage: UNK, UNK
     Dates: start: 20080618
  2. COUMADIN [Concomitant]
     Dosage: 1 MG, UNK
  3. PREDNISONE [Concomitant]
     Dosage: 5 MG, 2/D
  4. LASIX [Concomitant]
     Dosage: 20 MG, 2/D
  5. POTASSIUM CHLORIDE [Concomitant]
     Dosage: 20 MG, DAILY (1/D)
  6. TOPROL-XL [Concomitant]
     Dosage: 50 MEQ, DAILY (1/D)
  7. DIGOXIN [Concomitant]
     Dosage: 0.125 MG, DAILY (1/D)

REACTIONS (3)
  - CEREBROVASCULAR ACCIDENT [None]
  - ISCHAEMIC STROKE [None]
  - THROMBOSIS [None]
